FAERS Safety Report 14245081 (Version 1)
Quarter: 2017Q4

REPORT INFORMATION
  Report Type: Spontaneous
  Country: US (occurrence: US)
  Receive Date: 20171202
  Receipt Date: 20171202
  Transmission Date: 20180321
  Serious: Yes (Hospitalization, Other)
  Sender: FDA-Public Use
  Company Number: US-ACCORD-061561

PATIENT
  Age: 73 Year
  Sex: Female

DRUGS (4)
  1. PAZOPANIB [Interacting]
     Active Substance: PAZOPANIB
     Indication: METASTATIC NEOPLASM
     Dosage: DURING THE FIRST MONTH
  2. PAZOPANIB [Interacting]
     Active Substance: PAZOPANIB
     Indication: METASTATIC NEOPLASM
     Dosage: 600 MG DAILY 25% REDUCED, FURTHER DECREASED TO 400 MG DAILY
  3. ROSUVASTATIN. [Suspect]
     Active Substance: ROSUVASTATIN
     Indication: HYPERLIPIDAEMIA
  4. PAZOPANIB [Interacting]
     Active Substance: PAZOPANIB
     Indication: METASTATIC NEOPLASM
     Dosage: 600 MG DAILY WAS 25% DOSE-REDUCED

REACTIONS (4)
  - Drug interaction [Unknown]
  - Renal injury [Recovered/Resolved]
  - Rhabdomyolysis [Recovered/Resolved]
  - Transaminases increased [Recovered/Resolved]
